FAERS Safety Report 9907050 (Version 2)
Quarter: 2014Q2

REPORT INFORMATION
  Report Type: Spontaneous
  Country: US (occurrence: US)
  Receive Date: 20140218
  Receipt Date: 20140414
  Transmission Date: 20141212
  Serious: Yes (Hospitalization)
  Sender: FDA-Public Use
  Company Number: US-B.I. PHARMACEUTICALS,INC./RIDGEFIELD-2014-BI-06776BP

PATIENT
  Sex: Female
  Weight: 62.14 kg

DRUGS (7)
  1. PRADAXA [Suspect]
     Indication: ATRIAL FIBRILLATION
     Route: 065
     Dates: start: 20120114, end: 20120208
  2. OCUVITE [Concomitant]
     Route: 048
  3. LABETALOL HCL [Concomitant]
     Dosage: 200 MG
     Route: 048
  4. CENTRUM COMPLETE MULTIVIT [Concomitant]
     Route: 048
  5. SIMVASTATIN [Concomitant]
     Dosage: 80 MG
     Route: 048
  6. DIOVAN [Concomitant]
     Dosage: 320 MG
     Route: 048
  7. COD LIVER OIL SOFTGEL [Concomitant]
     Route: 048

REACTIONS (1)
  - Gastrointestinal haemorrhage [Unknown]
